FAERS Safety Report 23045834 (Version 1)
Quarter: 2023Q4

REPORT INFORMATION
  Report Type: Spontaneous
  Country: JP (occurrence: JP)
  Receive Date: 20231009
  Receipt Date: 20231009
  Transmission Date: 20240110
  Serious: Yes (Hospitalization, Other)
  Sender: FDA-Public Use
  Company Number: JP-SA-2023SA299090

PATIENT
  Age: 56 Year
  Sex: Male
  Weight: 37 kg

DRUGS (14)
  1. OXALIPLATIN [Suspect]
     Active Substance: OXALIPLATIN
     Indication: Rectal cancer
     Dosage: 185.12 MG, QD
     Route: 041
     Dates: start: 20230622, end: 20230622
  2. OXALIPLATIN [Suspect]
     Active Substance: OXALIPLATIN
     Dosage: 148.096 MG
     Route: 041
     Dates: start: 20230718
  3. CAPECITABINE [Suspect]
     Active Substance: CAPECITABINE
     Indication: Rectal cancer
     Dosage: 1500 MG, BID
     Route: 048
     Dates: start: 20230622, end: 20230705
  4. CAPECITABINE [Suspect]
     Active Substance: CAPECITABINE
     Dosage: 1200 UNK
     Route: 048
     Dates: start: 20230718, end: 20230731
  5. DECADRON [Concomitant]
     Active Substance: DEXAMETHASONE
  6. HEPARINOID [Concomitant]
  7. DECADRON [Concomitant]
     Active Substance: DEXAMETHASONE
  8. MIYA-BM [Concomitant]
     Active Substance: CLOSTRIDIUM BUTYRICUM SPORES STRAIN M-55
  9. LOPERAMIDE HYDROCHLORIDE [Concomitant]
     Active Substance: LOPERAMIDE HYDROCHLORIDE
  10. ACETAMINOPHEN\TRAMADOL HYDROCHLORIDE [Concomitant]
     Active Substance: ACETAMINOPHEN\TRAMADOL HYDROCHLORIDE
  11. FLUNITRAZEPAM [Concomitant]
     Active Substance: FLUNITRAZEPAM
  12. GRANISETRON HYDROCHLORIDE [Concomitant]
     Active Substance: GRANISETRON HYDROCHLORIDE
  13. DEXTROSE [Concomitant]
     Active Substance: DEXTROSE\DEXTROSE MONOHYDRATE
  14. SODIUM CHLORIDE [Concomitant]
     Active Substance: SODIUM CHLORIDE

REACTIONS (4)
  - Acidosis [Recovering/Resolving]
  - Acute kidney injury [Unknown]
  - Diarrhoea [Recovering/Resolving]
  - Decreased appetite [Unknown]

NARRATIVE: CASE EVENT DATE: 20230622
